FAERS Safety Report 6201468-0 (Version None)
Quarter: 2009Q2

REPORT INFORMATION
  Report Type: 
  Country: None (occurrence: None)
  Receive Date: 20090526
  Receipt Date: 20090513
  Transmission Date: 20091009
  Serious: Yes (Hospitalization)
  Sender: FDA-Public Use
  Company Number: GB-ROCHE-633185

PATIENT
  Sex: Female
  Weight: 112.5 kg

DRUGS (4)
  1. ORLISTAT [Suspect]
     Indication: OBESITY
     Route: 048
     Dates: start: 20090111, end: 20090401
  2. ORLISTAT [Suspect]
     Route: 048
     Dates: start: 20090501
  3. TEMAZEPAM [Concomitant]
     Indication: SOMNOLENCE
     Route: 048
  4. DIAZEPAM [Concomitant]
     Route: 048

REACTIONS (2)
  - DIARRHOEA [None]
  - MALAISE [None]
